FAERS Safety Report 19195159 (Version 2)
Quarter: 2021Q2

REPORT INFORMATION
  Report Type: Spontaneous
  Country: DE (occurrence: DE)
  Receive Date: 20210429
  Receipt Date: 20210625
  Transmission Date: 20210717
  Serious: Yes (Death, Hospitalization, Other)
  Sender: FDA-Public Use
  Company Number: DE-B.I. PHARMACEUTICALS,INC./RIDGEFIELD-2021-BI-099869

PATIENT
  Age: 82 Year
  Sex: Female
  Weight: 60 kg

DRUGS (2)
  1. XARELTO [Suspect]
     Active Substance: RIVAROXABAN
     Indication: PRODUCT USED FOR UNKNOWN INDICATION
  2. PRADAXA [Suspect]
     Active Substance: DABIGATRAN ETEXILATE MESYLATE
     Indication: PRODUCT USED FOR UNKNOWN INDICATION
     Dates: start: 201502

REACTIONS (12)
  - Eye disorder [Unknown]
  - Fall [Unknown]
  - Inflammation [Recovering/Resolving]
  - Blindness [Unknown]
  - Thrombosis [Unknown]
  - Muscle spasms [Unknown]
  - Death [Fatal]
  - Cyanosis [Unknown]
  - Cyanosis [Recovering/Resolving]
  - Fatigue [Recovering/Resolving]
  - Loss of consciousness [Unknown]
  - Leg amputation [Unknown]

NARRATIVE: CASE EVENT DATE: 2019
